FAERS Safety Report 8595020-X (Version None)
Quarter: 2012Q3

REPORT INFORMATION
  Report Type: 
  Country: None (occurrence: None)
  Receive Date: 20120815
  Receipt Date: 20120808
  Transmission Date: 20120928
  Serious: Yes (Hospitalization, Other)
  Sender: FDA-Public Use
  Company Number: US-VERTEX PHARMACEUTICALS INC.-AE-2012-011810

PATIENT
  Age: 67 Year
  Sex: Male
  Weight: 73.548 kg

DRUGS (3)
  1. INCIVEK [Suspect]
     Indication: HEPATITIS C
     Route: 048
     Dates: start: 20120110
  2. RIBAVIRIN [Concomitant]
     Indication: HEPATITIS C
     Route: 048
     Dates: start: 20120110
  3. PEGASYS [Concomitant]
     Indication: HEPATITIS C
     Route: 058
     Dates: start: 20120110

REACTIONS (16)
  - IMMUNOSUPPRESSION [None]
  - MUCOSAL INFLAMMATION [None]
  - STEVENS-JOHNSON SYNDROME [None]
  - DRUG ERUPTION [None]
  - EOSINOPHILIA [None]
  - CONFUSIONAL STATE [None]
  - CLOSTRIDIAL INFECTION [None]
  - GENERALISED OEDEMA [None]
  - YELLOW SKIN [None]
  - PNEUMONIA [None]
  - SEPSIS [None]
  - BLOOD IMMUNOGLOBULIN E INCREASED [None]
  - HALLUCINATION [None]
  - STOMATITIS [None]
  - ORAL CANDIDIASIS [None]
  - HEPATITIS [None]
